FAERS Safety Report 7476379-3 (Version None)
Quarter: 2011Q2

REPORT INFORMATION
  Report Type: 
  Country: None (occurrence: None)
  Receive Date: 20110512
  Receipt Date: 20110502
  Transmission Date: 20111010
  Serious: Yes (Other)
  Sender: FDA-Public Use
  Company Number: A0927026A

PATIENT
  Sex: Male
  Weight: 103 kg

DRUGS (3)
  1. RIBAVIRAN [Suspect]
     Route: 048
     Dates: start: 20081223, end: 20091126
  2. ELTROMBOPAG [Suspect]
     Indication: THROMBOCYTOPENIA
     Route: 048
     Dates: start: 20081125, end: 20091126
  3. PEGINTERFERON ALFA-2A [Suspect]
     Dosage: 180MCG WEEKLY
     Route: 058
     Dates: start: 20081223, end: 20091126

REACTIONS (1)
  - DEAFNESS [None]
